FAERS Safety Report 4491270-2 (Version None)
Quarter: 2004Q4

REPORT INFORMATION
  Report Type: 
  Country: None (occurrence: None)
  Receive Date: 20041101
  Receipt Date: 20041101
  Transmission Date: 20050328
  Serious: Yes (Hospitalization)
  Sender: FDA-Public Use
  Company Number: None

PATIENT
  Age: 18 Year
  Sex: Female
  Weight: 44.7 kg

DRUGS (8)
  1. FERRLECIT [Suspect]
     Indication: IRON DEFICIENCY ANAEMIA
     Dosage: 125 MG IV Q MONTH
     Route: 042
     Dates: start: 20031224
  2. FERRLECIT [Suspect]
     Indication: IRON DEFICIENCY ANAEMIA
     Dosage: 125 MG IV Q MONTH
     Route: 042
     Dates: start: 20040303
  3. FERRLECIT [Suspect]
     Indication: IRON DEFICIENCY ANAEMIA
     Dosage: 125 MG IV Q MONTH
     Route: 042
     Dates: start: 20040430
  4. FERRLECIT [Suspect]
     Indication: IRON DEFICIENCY ANAEMIA
     Dosage: 125 MG IV Q MONTH
     Route: 042
     Dates: start: 20040528
  5. FERRLECIT [Suspect]
     Indication: IRON DEFICIENCY ANAEMIA
     Dosage: 125 MG IV Q MONTH
     Route: 042
     Dates: start: 20040625
  6. CARBONYL IRON [Concomitant]
  7. INTERFERON GAMMA [Concomitant]
  8. AMBIEN [Concomitant]

REACTIONS (2)
  - ANAPHYLACTIC SHOCK [None]
  - METABOLIC ACIDOSIS [None]
